FAERS Safety Report 15471438 (Version 2)
Quarter: 2018Q4

REPORT INFORMATION
  Report Type: Report from Study
  Country: AT (occurrence: AT)
  Receive Date: 20181007
  Receipt Date: 20181225
  Transmission Date: 20190205
  Serious: Yes (Other)
  Sender: FDA-Public Use
  Company Number: AT-TEVA-2018-AT-961646

PATIENT
  Age: 75 Year
  Sex: Male

DRUGS (11)
  1. PACLITAXEL. [Suspect]
     Active Substance: PACLITAXEL
     Route: 042
     Dates: start: 20170118
  2. PACLITAXEL. [Suspect]
     Active Substance: PACLITAXEL
     Route: 042
     Dates: start: 20161220
  3. RAMUCIRUMAB [Suspect]
     Active Substance: RAMUCIRUMAB
     Route: 042
     Dates: start: 20170306, end: 20170414
  4. PACLITAXEL. [Suspect]
     Active Substance: PACLITAXEL
     Route: 042
     Dates: start: 20161212
  5. PACLITAXEL. [Suspect]
     Active Substance: PACLITAXEL
     Indication: GASTRIC CANCER
     Dosage: 150.77 MG, UNKNOWN
     Route: 042
     Dates: start: 20161227
  6. RAMUCIRUMAB [Suspect]
     Active Substance: RAMUCIRUMAB
     Route: 065
     Dates: start: 20170414, end: 20170414
  7. PACLITAXEL. [Suspect]
     Active Substance: PACLITAXEL
     Route: 042
     Dates: start: 20170208
  8. PACLITAXEL. [Suspect]
     Active Substance: PACLITAXEL
     Route: 042
     Dates: start: 20170306
  9. PACLITAXEL. [Suspect]
     Active Substance: PACLITAXEL
     Route: 042
     Dates: start: 20170110
  10. RAMUCIRUMAB [Suspect]
     Active Substance: RAMUCIRUMAB
     Indication: GASTRIC CANCER
     Route: 042
     Dates: start: 20161227
  11. RAMUCIRUMAB [Suspect]
     Active Substance: RAMUCIRUMAB
     Route: 042
     Dates: start: 20170414, end: 20170414

REACTIONS (4)
  - Epistaxis [Not Recovered/Not Resolved]
  - Osteoarthritis [Not Recovered/Not Resolved]
  - Thrombocytopenia [Recovered/Resolved]
  - Neutropenia [Recovered/Resolved]

NARRATIVE: CASE EVENT DATE: 20161227
